FAERS Safety Report 5914021-0 (Version None)
Quarter: 2008Q4

REPORT INFORMATION
  Report Type: 
  Country: None (occurrence: None)
  Receive Date: 20081009
  Receipt Date: 20080930
  Transmission Date: 20090506
  Serious: Yes (Hospitalization)
  Sender: FDA-Public Use
  Company Number: FR-BRISTOL-MYERS SQUIBB COMPANY-14362594

PATIENT
  Age: 56 Year
  Sex: Male

DRUGS (7)
  1. ENDOXAN [Suspect]
     Indication: T-CELL TYPE ACUTE LEUKAEMIA
     Dates: start: 20080902, end: 20080902
  2. METHOTREXATE SODIUM [Suspect]
     Indication: T-CELL TYPE ACUTE LEUKAEMIA
     Dosage: DURATION - 2 ADMIN.15MG ON 19AUG08,12MG ON 03SEP08.
     Route: 037
     Dates: start: 20080819, end: 20080903
  3. ARACYTINE [Suspect]
     Indication: T-CELL TYPE ACUTE LEUKAEMIA
     Route: 037
     Dates: start: 20080903, end: 20080903
  4. DEPO-MEDROL [Suspect]
     Indication: T-CELL TYPE ACUTE LEUKAEMIA
     Route: 037
     Dates: start: 20080903, end: 20080903
  5. DAUNORUBICIN HCL [Suspect]
     Dates: start: 20080902, end: 20080904
  6. SOLU-MEDROL [Suspect]
     Dates: start: 20080902, end: 20080915
  7. ONCOVIN [Concomitant]
     Dates: start: 20080902, end: 20080909

REACTIONS (1)
  - CEREBRAL THROMBOSIS [None]
